FAERS Safety Report 4388540-5 (Version None)
Quarter: 2004Q2

REPORT INFORMATION
  Report Type: 
  Country: None (occurrence: None)
  Receive Date: 20040625
  Receipt Date: 20040610
  Transmission Date: 20050107
  Serious: Yes (Hospitalization, Disabling)
  Sender: FDA-Public Use
  Company Number: GB-JNJFOC-20040602726

PATIENT
  Sex: Male

DRUGS (1)
  1. RISPERDAL [Suspect]
     Indication: DRUG USE FOR UNKNOWN INDICATION
     Dosage: 1 MG, 2 IN 1 DAY

REACTIONS (7)
  - FAECAL INCONTINENCE [None]
  - FEELING DRUNK [None]
  - GAIT DISTURBANCE [None]
  - HALLUCINATION [None]
  - MUSCLE RIGIDITY [None]
  - URINARY INCONTINENCE [None]
  - WEIGHT INCREASED [None]
